FAERS Safety Report 13574448 (Version 3)
Quarter: 2018Q2

REPORT INFORMATION
  Report Type: Report from Study
  Country: CA (occurrence: CA)
  Receive Date: 20170523
  Receipt Date: 20180422
  Transmission Date: 20180711
  Serious: Yes (Hospitalization, Other)
  Sender: FDA-Public Use
  Company Number: CA-APOPHARMA-2017AP012279

PATIENT
  Sex: Female
  Weight: 74 kg

DRUGS (1)
  1. FERRIPROX [Suspect]
     Active Substance: DEFERIPRONE
     Indication: SICKLE CELL ANAEMIA
     Dosage: 40.5 MG/KG, BID
     Route: 048
     Dates: start: 20160831, end: 20170512

REACTIONS (3)
  - Infection [Unknown]
  - Agranulocytosis [Unknown]
  - Toxicity to various agents [Unknown]
